FAERS Safety Report 13337443 (Version 2)
Quarter: 2017Q1

REPORT INFORMATION
  Report Type: Spontaneous
  Country: AR (occurrence: AR)
  Receive Date: 20170315
  Receipt Date: 20170329
  Transmission Date: 20170428
  Serious: Yes (Death, Hospitalization, Other)
  Sender: FDA-Public Use
  Company Number: PHHY2017AR037792

PATIENT
  Sex: Male

DRUGS (2)
  1. TASIGNA [Suspect]
     Active Substance: NILOTINIB
     Indication: CHRONIC MYELOID LEUKAEMIA
     Dosage: 400 OT, UNK
     Route: 065
  2. TASIGNA [Suspect]
     Active Substance: NILOTINIB
     Dosage: 200 OT, UNK (DOSE WAS DECREASED TO 50 PERCENT)
     Route: 065
     Dates: start: 20170101

REACTIONS (2)
  - Cardiac disorder [Unknown]
  - Cardiac failure [Fatal]
